FAERS Safety Report 8604204-3 (Version None)
Quarter: 2012Q3

REPORT INFORMATION
  Report Type: 
  Country: None (occurrence: None)
  Receive Date: 20120820
  Receipt Date: 20120813
  Transmission Date: 20120928
  Serious: Yes (Other)
  Sender: FDA-Public Use
  Company Number: US-PFIZER INC-2012197252

PATIENT
  Age: 14 Year
  Sex: Female

DRUGS (6)
  1. QVAR 40 [Concomitant]
     Indication: HYPERSENSITIVITY
     Dosage: UNK
     Route: 045
  2. EPIPEN [Suspect]
     Indication: HYPERSENSITIVITY
     Dosage: 0.3 ML, AS NEEDED
     Route: 030
     Dates: start: 20110101
  3. EPIPEN [Suspect]
     Indication: DYSPNOEA
  4. VENTOLIN [Concomitant]
     Indication: HYPERSENSITIVITY
     Dosage: UNK
     Route: 045
  5. ACCOLATE [Concomitant]
     Indication: HYPERSENSITIVITY
     Dosage: UNK
     Route: 048
  6. DULERA [Concomitant]
     Indication: HYPERSENSITIVITY
     Dosage: UNK
     Route: 045

REACTIONS (2)
  - PRODUCT QUALITY ISSUE [None]
  - DRUG INEFFECTIVE [None]
